FAERS Safety Report 8324965 (Version 4)
Quarter: 2015Q3

REPORT INFORMATION
  Report Type: Report from Study
  Country: DE (occurrence: DE)
  Receive Date: 20120106
  Receipt Date: 20150806
  Transmission Date: 20151125
  Serious: Yes (Hospitalization)
  Sender: FDA-Public Use
  Company Number: DE-SANOFI-AVENTIS-2011SA082546

PATIENT
  Age: 75 Year
  Sex: Male
  Weight: 110 kg

DRUGS (14)
  1. NOVALGIN [Concomitant]
     Active Substance: METAMIZOLE SODIUM
  2. NOVAMINSULFON [Concomitant]
     Active Substance: METAMIZOLE
     Route: 048
     Dates: start: 20111117
  3. CABAZITAXEL [Suspect]
     Active Substance: CABAZITAXEL
     Indication: PROSTATE CANCER
     Route: 042
     Dates: start: 20111208, end: 20111208
  4. TAMSULOSIN [Concomitant]
     Active Substance: TAMSULOSIN
     Route: 048
     Dates: start: 20111117
  5. BISOPROLOL [Concomitant]
     Active Substance: BISOPROLOL
  6. RAMILICH [Concomitant]
     Active Substance: RAMIPRIL
     Route: 048
     Dates: start: 1997
  7. DELIX [Concomitant]
     Active Substance: RAMIPRIL
  8. ISOSORBIDE DINITRATE. [Concomitant]
     Active Substance: ISOSORBIDE DINITRATE
  9. AMITRIPTYLINE HYDROCHLORIDE. [Concomitant]
     Active Substance: AMITRIPTYLINE HYDROCHLORIDE
     Route: 048
     Dates: start: 20111117
  10. ZOMETA [Concomitant]
     Active Substance: ZOLEDRONIC ACID
     Route: 048
     Dates: start: 200908
  11. TRAMAL - SLOW RELEASE [Concomitant]
     Route: 048
     Dates: start: 20111117, end: 20111208
  12. PREDNISOLONE. [Suspect]
     Active Substance: PREDNISOLONE
     Indication: PROSTATE CANCER
     Route: 048
     Dates: start: 20111208, end: 20111208
  13. DICLOFENAC [Concomitant]
     Active Substance: DICLOFENAC
     Route: 048
     Dates: start: 20111117
  14. TORASEMIDE [Concomitant]
     Active Substance: TORSEMIDE

REACTIONS (3)
  - Accidental overdose [Unknown]
  - Wrong drug administered [Recovered/Resolved]
  - Febrile neutropenia [Recovered/Resolved]

NARRATIVE: CASE EVENT DATE: 20111208
